FAERS Safety Report 13423877 (Version 1)
Quarter: 2017Q2

REPORT INFORMATION
  Report Type: Spontaneous
  Country: US (occurrence: US)
  Receive Date: 20170410
  Receipt Date: 20170410
  Transmission Date: 20170830
  Serious: Yes (Death)
  Sender: FDA-Public Use
  Company Number: US-STANDARD HOMEOPATHIC COMPANY-1065224

PATIENT
  Age: 13 Month
  Sex: Male

DRUGS (4)
  1. HYLANDS BABY TINY COLD TABLETS [Suspect]
     Active Substance: HOMEOPATHICS
     Indication: RHINORRHOEA
     Route: 048
     Dates: end: 20140118
  2. HYLANDS BABY TINY COLD TABLETS [Suspect]
     Active Substance: HOMEOPATHICS
     Indication: PULMONARY CONGESTION
     Route: 048
     Dates: end: 20140118
  3. HYLANDS BABY TINY COLD TABLETS [Suspect]
     Active Substance: HOMEOPATHICS
     Indication: SNEEZING
     Route: 048
     Dates: end: 20140118
  4. CHILDRENS TYLENOL [Suspect]
     Active Substance: ACETAMINOPHEN
     Route: 048
     Dates: start: 20140119

REACTIONS (1)
  - Death [Fatal]

NARRATIVE: CASE EVENT DATE: 20140119
